FAERS Safety Report 6943669-X (Version None)
Quarter: 2010Q3

REPORT INFORMATION
  Report Type: 
  Country: None (occurrence: None)
  Receive Date: 20100826
  Receipt Date: 20100817
  Transmission Date: 20110219
  Serious: Yes (Other)
  Sender: FDA-Public Use
  Company Number: FR-GILEAD-2010-0031170

PATIENT
  Sex: Male

DRUGS (1)
  1. VIREAD [Suspect]
     Indication: HIV INFECTION

REACTIONS (4)
  - FANCONI SYNDROME ACQUIRED [None]
  - METABOLIC ACIDOSIS [None]
  - MUSCLE SPASMS [None]
  - RENAL FAILURE [None]
